FAERS Safety Report 25681257 (Version 1)
Quarter: 2025Q3

REPORT INFORMATION
  Report Type: Spontaneous
  Country: US (occurrence: US)
  Receive Date: 20250814
  Receipt Date: 20250814
  Transmission Date: 20251020
  Serious: Yes (Hospitalization)
  Sender: BRISTOL-MYERS SQUIBB COMPANY
  Company Number: US-BRISTOL-MYERS SQUIBB COMPANY-2025-112873

PATIENT
  Age: 70 Year
  Sex: Female

DRUGS (2)
  1. AZACTAM [Suspect]
     Active Substance: AZTREONAM
     Indication: Product used for unknown indication
  2. VANCOMYCIN [Concomitant]
     Active Substance: VANCOMYCIN
     Indication: Product used for unknown indication
     Route: 042

REACTIONS (1)
  - Eye infection [Unknown]
